FAERS Safety Report 11138548 (Version 1)
Quarter: 2015Q2

REPORT INFORMATION
  Report Type: Spontaneous
  Country: US (occurrence: US)
  Receive Date: 20150527
  Receipt Date: 20150527
  Transmission Date: 20150821
  Serious: Yes (Hospitalization)
  Sender: FDA-Public Use
  Company Number: US-TEVA-483716USA

PATIENT
  Sex: Female

DRUGS (1)
  1. SOTALOL. [Suspect]
     Active Substance: SOTALOL

REACTIONS (1)
  - Heart rate irregular [Unknown]
